FAERS Safety Report 20023446 (Version 1)
Quarter: 2021Q4

REPORT INFORMATION
  Report Type: Spontaneous
  Country: US (occurrence: US)
  Receive Date: 20211102
  Receipt Date: 20211102
  Transmission Date: 20220303
  Serious: Yes (Hospitalization, Other)
  Sender: FDA-Public Use
  Company Number: US-BoehringerIngelheim-2021-BI-135727

PATIENT
  Age: 59 Year
  Sex: Female

DRUGS (2)
  1. SYNJARDY XR [Suspect]
     Active Substance: EMPAGLIFLOZIN\METFORMIN HYDROCHLORIDE
     Indication: Type 2 diabetes mellitus
     Dosage: 12.5/1000 TWO EXTENDED-RELEASE TABLETS DAILY
  2. OZEMPIC [Concomitant]
     Active Substance: SEMAGLUTIDE
     Indication: Product used for unknown indication

REACTIONS (4)
  - Hip arthroplasty [Recovered/Resolved]
  - Anaemia [Recovered/Resolved]
  - Diabetic ketoacidosis [Recovered/Resolved]
  - COVID-19 pneumonia [Recovered/Resolved]
